FAERS Safety Report 14210830 (Version 1)
Quarter: 2017Q4

REPORT INFORMATION
  Report Type: Report from Study
  Country: CA (occurrence: CA)
  Receive Date: 20171121
  Receipt Date: 20171121
  Transmission Date: 20180321
  Serious: Yes (Hospitalization, Other)
  Sender: FDA-Public Use
  Company Number: CA-AMGEN-CANSL2017171682

PATIENT
  Age: 82 Year
  Sex: Female

DRUGS (13)
  1. DABIGATRAN [Concomitant]
     Active Substance: DABIGATRAN
  2. FUROSEMIDE. [Concomitant]
     Active Substance: FUROSEMIDE
  3. OMEPRAZOLE. [Concomitant]
     Active Substance: OMEPRAZOLE
  4. VITAMIN D [Concomitant]
     Active Substance: CHOLECALCIFEROL
  5. PROLIA [Suspect]
     Active Substance: DENOSUMAB
     Indication: PRODUCT USED FOR UNKNOWN INDICATION
     Dosage: 60 MG/ML, UNK
     Route: 065
     Dates: start: 20160930
  6. HYDROCHLOROTHIAZIDE. [Concomitant]
     Active Substance: HYDROCHLOROTHIAZIDE
  7. POTASSIUM CHLORIDE. [Concomitant]
     Active Substance: POTASSIUM CHLORIDE
  8. CANDESARTAN. [Concomitant]
     Active Substance: CANDESARTAN
  9. AMLODIPINE [Concomitant]
     Active Substance: AMLODIPINE BESYLATE
  10. SENNOSIDE [Concomitant]
     Active Substance: SENNOSIDES
  11. LEVOTHYROXINE. [Concomitant]
     Active Substance: LEVOTHYROXINE
  12. ROSUVASTATIN. [Concomitant]
     Active Substance: ROSUVASTATIN
  13. SOLIFENACIN [Concomitant]
     Active Substance: SOLIFENACIN

REACTIONS (1)
  - Cholelithiasis [Unknown]

NARRATIVE: CASE EVENT DATE: 201711
